FAERS Safety Report 10461264 (Version 1)
Quarter: 2014Q3

REPORT INFORMATION
  Report Type: Spontaneous
  Country: US (occurrence: None)
  Receive Date: 20140917
  Receipt Date: 20140917
  Transmission Date: 20150326
  Serious: No
  Sender: FDA-Public Use
  Company Number: None

PATIENT
  Age: 54 Year
  Sex: Female

DRUGS (3)
  1. PEGASYS [Suspect]
     Active Substance: PEGINTERFERON ALFA-2A
     Dosage: 180MCG  EVERY WEEK  SUBCUTANEOUS
     Route: 058
  2. RIBAVIRIN. [Concomitant]
     Active Substance: RIBAVIRIN
  3. SOVLADI [Concomitant]

REACTIONS (6)
  - Injection site erythema [None]
  - No therapeutic response [None]
  - Injection site pruritus [None]
  - Injection site pain [None]
  - Injection site vesicles [None]
  - Injection site papule [None]

NARRATIVE: CASE EVENT DATE: 20140910
